FAERS Safety Report 5228954-4 (Version None)
Quarter: 2007Q1

REPORT INFORMATION
  Report Type: 
  Country: None (occurrence: None)
  Receive Date: 20070131
  Receipt Date: 20070116
  Transmission Date: 20070707
  Serious: Yes (Hospitalization)
  Sender: FDA-Public Use
  Company Number: 2007S1000045

PATIENT
  Age: 59 Year
  Sex: Female
  Weight: 74.8435 kg

DRUGS (7)
  1. VERAPAMIL HCL [Suspect]
     Indication: HYPERTENSION
     Dosage: 240 MG; DAILY; ORAL
     Route: 048
  2. VERAPAMIL HCL [Suspect]
     Indication: TACHYCARDIA
     Dosage: 240 MG; DAILY; ORAL
     Route: 048
  3. HYDROCHLOROTHIAZIDE [Suspect]
     Indication: HYPERTENSION
     Dosage: 25 MG; ORAL
     Route: 048
     Dates: end: 20061231
  4. LORAZEPAM [Concomitant]
  5. PAXIL [Concomitant]
  6. VITAMIN CAP [Concomitant]
  7. CALCIUM + VITAMIN D [Concomitant]

REACTIONS (1)
  - BREAST CANCER FEMALE [None]
